FAERS Safety Report 4682217-4 (Version None)
Quarter: 2005Q2

REPORT INFORMATION
  Report Type: 
  Country: None (occurrence: None)
  Receive Date: 20050606
  Receipt Date: 20050525
  Transmission Date: 20051028
  Serious: Yes (Other)
  Sender: FDA-Public Use
  Company Number: US-KINGPHARMUSA00001-K200500737

PATIENT
  Age: 73 Year
  Sex: Female

DRUGS (2)
  1. ALTACE [Suspect]
     Route: 048
     Dates: start: 20050309, end: 20050314
  2. NOTEN [Concomitant]
     Indication: ESSENTIAL HYPERTENSION
     Dosage: 1 DOSE, QD
     Route: 048

REACTIONS (6)
  - CRYING [None]
  - DEPRESSION [None]
  - DIARRHOEA [None]
  - DIZZINESS [None]
  - HAEMORRHAGE [None]
  - RASH [None]
